FAERS Safety Report 5722829-X (Version None)
Quarter: 2008Q2

REPORT INFORMATION
  Report Type: 
  Country: None (occurrence: None)
  Receive Date: 20080429
  Receipt Date: 20080111
  Transmission Date: 20081010
  Serious: No
  Sender: FDA-Public Use
  Company Number: US-ASTRAZENECA-2008UW00839

PATIENT
  Age: 69 Year
  Sex: Male
  Weight: 122.5 kg

DRUGS (5)
  1. NEXIUM [Suspect]
     Indication: GASTROOESOPHAGEAL REFLUX DISEASE
     Route: 048
     Dates: start: 20010101
  2. HUMULIN 70/30 [Concomitant]
  3. PAIN MEDICATION [Concomitant]
  4. MEDICATION FOR NASAL CONGESTION [Concomitant]
  5. TENORMIN [Concomitant]

REACTIONS (1)
  - BREATH ALCOHOL TEST POSITIVE [None]
